FAERS Safety Report 17516361 (Version 1)
Quarter: 2020Q1

REPORT INFORMATION
  Report Type: Spontaneous
  Country: MX (occurrence: MX)
  Receive Date: 20200309
  Receipt Date: 20200309
  Transmission Date: 20200409
  Serious: Yes (Hospitalization)
  Sender: FDA-Public Use
  Company Number: MX-OCTA-GAM04120MX

PATIENT
  Age: 64 Year
  Sex: Female
  Weight: 90 kg

DRUGS (1)
  1. OCTAGAM IMMUNE GLOBULIN (HUMAN) [Suspect]
     Active Substance: HUMAN IMMUNOGLOBULIN G
     Indication: IMMUNODEFICIENCY COMMON VARIABLE
     Dosage: ONCE EVERY 45 DAYS
     Route: 042
     Dates: start: 20200223, end: 20200223

REACTIONS (10)
  - Leukopenia [Unknown]
  - Hypothermia [Recovered/Resolved]
  - Hypotension [Recovered/Resolved]
  - Liquid product physical issue [Unknown]
  - Hyperthermia [Recovered/Resolved]
  - Lymphopenia [Unknown]
  - Nausea [Recovered/Resolved]
  - Vomiting [Recovered/Resolved]
  - Diarrhoea [Recovered/Resolved]
  - Suspected counterfeit product [Unknown]

NARRATIVE: CASE EVENT DATE: 20200223
